FAERS Safety Report 7553586-2 (Version None)
Quarter: 2011Q2

REPORT INFORMATION
  Report Type: 
  Country: None (occurrence: None)
  Receive Date: 20110617
  Receipt Date: 20110608
  Transmission Date: 20111010
  Serious: Yes (Other)
  Sender: FDA-Public Use
  Company Number: US-JNJFOC-20110408949

PATIENT
  Sex: Female

DRUGS (1)
  1. DOXORUBICIN HCL [Suspect]
     Indication: OVARIAN CANCER RECURRENT
     Route: 042
     Dates: start: 20110207

REACTIONS (3)
  - OEDEMA PERIPHERAL [None]
  - ERYTHEMA [None]
  - MUSCULOSKELETAL STIFFNESS [None]
